FAERS Safety Report 22366866 (Version 1)
Quarter: 2023Q2

REPORT INFORMATION
  Report Type: Spontaneous
  Country: US (occurrence: US)
  Receive Date: 20230525
  Receipt Date: 20230525
  Transmission Date: 20230721
  Serious: Yes (Other)
  Sender: FDA-Public Use
  Company Number: US-009507513-2305USA006598

PATIENT
  Sex: Male
  Weight: 99.773 kg

DRUGS (2)
  1. KEYTRUDA [Suspect]
     Active Substance: PEMBROLIZUMAB
     Indication: Renal cancer
  2. LENVATINIB MESYLATE [Suspect]
     Active Substance: LENVATINIB MESYLATE
     Indication: Renal cancer
     Dosage: 20 MILLIGRAM, ONCE DAILY
     Route: 048
     Dates: start: 20230331

REACTIONS (7)
  - Malignant neoplasm progression [Unknown]
  - Inflammation [Unknown]
  - Ill-defined disorder [Unknown]
  - Drug ineffective [Unknown]
  - Blood pressure abnormal [Unknown]
  - Dry skin [Unknown]
  - Arthritis [Unknown]

NARRATIVE: CASE EVENT DATE: 20230101
